FAERS Safety Report 11834487 (Version 3)
Quarter: 2018Q3

REPORT INFORMATION
  Report Type: Spontaneous
  Country: US (occurrence: US)
  Receive Date: 20151214
  Receipt Date: 20180920
  Transmission Date: 20181010
  Serious: Yes (Hospitalization, Other)
  Sender: FDA-Public Use
  Company Number: US-JNJFOC-20151107662

PATIENT
  Age: 27 Year
  Sex: Female

DRUGS (10)
  1. LOVENOX [Concomitant]
     Active Substance: ENOXAPARIN SODIUM
     Route: 065
  2. TRAZODONE [Concomitant]
     Active Substance: TRAZODONE HYDROCHLORIDE
     Route: 065
  3. ACETAMINOPHEN. [Concomitant]
     Active Substance: ACETAMINOPHEN
     Route: 065
  4. ASA [Concomitant]
     Active Substance: ASPIRIN
     Route: 065
  5. COUMADIN [Concomitant]
     Active Substance: WARFARIN SODIUM
     Route: 065
  6. XARELTO [Suspect]
     Active Substance: RIVAROXABAN
     Indication: DEEP VEIN THROMBOSIS
     Route: 048
     Dates: start: 2014, end: 2015
  7. XARELTO [Suspect]
     Active Substance: RIVAROXABAN
     Indication: OVARIAN VEIN THROMBOSIS
     Route: 048
     Dates: start: 2014, end: 2015
  8. IBUPROFEN. [Concomitant]
     Active Substance: IBUPROFEN
     Route: 065
  9. TYLENOL [Concomitant]
     Active Substance: ACETAMINOPHEN
     Route: 065
  10. PERCOCET [Concomitant]
     Active Substance: ACETAMINOPHEN\OXYCODONE HYDROCHLORIDE
     Route: 065

REACTIONS (32)
  - Device dislocation [Unknown]
  - Uterine perforation [Recovering/Resolving]
  - Mental disorder [Unknown]
  - Ovarian cyst ruptured [Unknown]
  - Fallopian tube perforation [Unknown]
  - Ovarian vein thrombosis [Unknown]
  - Tooth disorder [Unknown]
  - Dyspareunia [Unknown]
  - Nausea [Unknown]
  - Vaginal haemorrhage [Unknown]
  - Device use issue [Unknown]
  - Weight decreased [Recovered/Resolved]
  - Bladder disorder [Unknown]
  - Alopecia [Unknown]
  - Vaginal discharge [Unknown]
  - Bacterial vaginosis [Unknown]
  - Pain [Unknown]
  - Abdominal pain [Unknown]
  - Pelvic pain [Unknown]
  - Ultrasound liver abnormal [Unknown]
  - Asthenia [Not Recovered/Not Resolved]
  - Dysmenorrhoea [Unknown]
  - Fungal infection [Unknown]
  - Rash [Recovered/Resolved]
  - Bacterial infection [Recovered/Resolved]
  - Thrombosis [Unknown]
  - Fatigue [Not Recovered/Not Resolved]
  - Migraine [Unknown]
  - Furuncle [Unknown]
  - Depression [Unknown]
  - Menorrhagia [Not Recovered/Not Resolved]
  - Ovarian cyst [Unknown]

NARRATIVE: CASE EVENT DATE: 2014
